FAERS Safety Report 5271414-5 (Version None)
Quarter: 2007Q1

REPORT INFORMATION
  Report Type: 
  Country: None (occurrence: None)
  Receive Date: 20070315
  Receipt Date: 20070228
  Transmission Date: 20070707
  Serious: Yes (Death)
  Sender: FDA-Public Use
  Company Number: 100#08#2007-00783

PATIENT
  Age: 58 Year
  Sex: Male

DRUGS (2)
  1. CARBOPLATIN [Suspect]
     Indication: THYMOMA
     Dosage: 550 MG; TWO COURSES
  2. TAXOL [Suspect]
     Indication: THYMOMA
     Dosage: 330 MG; TWO COURSES

REACTIONS (2)
  - MYOCARDITIS [None]
  - POLYMYOSITIS [None]
